FAERS Safety Report 12215615 (Version 2)
Quarter: 2016Q2

REPORT INFORMATION
  Report Type: Spontaneous
  Country: US (occurrence: US)
  Receive Date: 20160328
  Receipt Date: 20160525
  Transmission Date: 20160815
  Serious: No
  Sender: FDA-Public Use
  Company Number: PHHY2016US040737

PATIENT
  Sex: Male

DRUGS (1)
  1. STALEVO [Suspect]
     Active Substance: CARBIDOPA\ENTACAPONE\LEVODOPA
     Indication: PRODUCT USED FOR UNKNOWN INDICATION
     Dosage: 200/50/200 MG
     Route: 065

REACTIONS (4)
  - Urine odour abnormal [Not Recovered/Not Resolved]
  - Eye irritation [Not Recovered/Not Resolved]
  - Product quality issue [Unknown]
  - Product substitution issue [Unknown]
